FAERS Safety Report 14784275 (Version 2)
Quarter: 2018Q3

REPORT INFORMATION
  Report Type: Report from Study
  Country: None (occurrence: US)
  Receive Date: 20180420
  Receipt Date: 20180709
  Transmission Date: 20181010
  Serious: Yes (Hospitalization, Other)
  Sender: FDA-Public Use
  Company Number: US-ABBVIE-18S-163-2323468-00

PATIENT
  Age: 60 Year
  Sex: Female
  Weight: 62.65 kg

DRUGS (2)
  1. CREON [Suspect]
     Active Substance: PANCRELIPASE AMYLASE\PANCRELIPASE LIPASE\PANCRELIPASE PROTEASE
     Indication: PANCREATECTOMY
     Dosage: 10 CAPSULES A DAY
     Route: 048
  2. INSULIN [Concomitant]
     Active Substance: INSULIN NOS
     Indication: DIABETES MELLITUS

REACTIONS (6)
  - Pancreatic failure [Not Recovered/Not Resolved]
  - Fatigue [Not Recovered/Not Resolved]
  - Sepsis [Not Recovered/Not Resolved]
  - Benign pancreatic neoplasm [Unknown]
  - Anaemia [Not Recovered/Not Resolved]
  - Hypersomnia [Not Recovered/Not Resolved]

NARRATIVE: CASE EVENT DATE: 20151108
